FAERS Safety Report 6761175-2 (Version None)
Quarter: 2010Q2

REPORT INFORMATION
  Report Type: 
  Country: None (occurrence: None)
  Receive Date: 20100604
  Receipt Date: 20100525
  Transmission Date: 20101027
  Serious: Yes (Death)
  Sender: FDA-Public Use
  Company Number: 1000013536

PATIENT
  Age: 20 Year
  Sex: Male
  Weight: 81.6475 kg

DRUGS (5)
  1. CELEXA [Suspect]
     Indication: ANXIETY
     Dosage: 40 MG (40 MG, 1 IN 1 D), ORAL
     Route: 048
  2. CELEXA [Suspect]
     Indication: DEPRESSION
     Dosage: 40 MG (40 MG, 1 IN 1 D), ORAL
     Route: 048
  3. BENADRYL [Concomitant]
  4. MARIJUANA [Concomitant]
  5. PROTEIN POWDER [Concomitant]

REACTIONS (3)
  - ARRHYTHMIA [None]
  - CARDIAC DEATH [None]
  - DRUG DEPENDENCE [None]
